FAERS Safety Report 10146924 (Version 1)
Quarter: 2014Q2

REPORT INFORMATION
  Report Type: Spontaneous
  Country: US (occurrence: None)
  Receive Date: 20140430
  Receipt Date: 20140430
  Transmission Date: 20141212
  Serious: Yes (Hospitalization)
  Sender: FDA-Public Use
  Company Number: None

PATIENT
  Age: 33 Year
  Sex: Male
  Weight: 63.87 kg

DRUGS (2)
  1. SOFOSBUVIR [Suspect]
     Indication: HEPATITIS C
     Route: 048
     Dates: start: 20140224
  2. SIMEPREVIR [Suspect]
     Indication: HEPATITIS C
     Route: 048
     Dates: start: 20140224

REACTIONS (3)
  - Sepsis [None]
  - Headache [None]
  - Vomiting [None]
